FAERS Safety Report 17244825 (Version 1)
Quarter: 2020Q1

REPORT INFORMATION
  Report Type: Spontaneous
  Country: US (occurrence: US)
  Receive Date: 20200108
  Receipt Date: 20200108
  Transmission Date: 20200409
  Serious: No
  Sender: FDA-Public Use
  Company Number: US-ELI_LILLY_AND_COMPANY-US201912004697

PATIENT
  Age: 42 Year
  Sex: Female

DRUGS (5)
  1. HYDROCODONE [Concomitant]
     Active Substance: HYDROCODONE
     Indication: PRODUCT USED FOR UNKNOWN INDICATION
     Dosage: UNK, PRN
  2. MELOXICAM. [Concomitant]
     Active Substance: MELOXICAM
     Indication: ARTHRITIS
     Dosage: UNK, PRN
  3. BENADRYL [Interacting]
     Active Substance: DIPHENHYDRAMINE HYDROCHLORIDE
     Indication: CHEST DISCOMFORT
     Dosage: UNK UNK, UNKNOWN
     Route: 065
  4. PREDNISONE. [Interacting]
     Active Substance: PREDNISONE
     Indication: PRODUCT USED FOR UNKNOWN INDICATION
     Dosage: UNK UNK, PRN
     Route: 065
  5. TALTZ [Suspect]
     Active Substance: IXEKIZUMAB
     Indication: PRODUCT USED FOR UNKNOWN INDICATION
     Dosage: 80 MG, UNKNOWN
     Route: 058
     Dates: start: 20191203

REACTIONS (13)
  - Swelling face [Unknown]
  - Blood pressure increased [Unknown]
  - Pruritus [Unknown]
  - Dizziness [Unknown]
  - Drug interaction [Unknown]
  - Chest discomfort [Unknown]
  - Injection site erythema [Unknown]
  - Mouth swelling [Unknown]
  - Energy increased [Unknown]
  - Disturbance in attention [Unknown]
  - Insomnia [Unknown]
  - Aggression [Unknown]
  - Swollen tongue [Unknown]

NARRATIVE: CASE EVENT DATE: 201912
